FAERS Safety Report 4531142-8 (Version None)
Quarter: 2004Q4

REPORT INFORMATION
  Report Type: 
  Country: None (occurrence: None)
  Receive Date: 20041130
  Receipt Date: 20040629
  Transmission Date: 20050328
  Serious: Yes (Other)
  Sender: FDA-Public Use
  Company Number: WAES 0407USA00516

PATIENT
  Age: 81 Year
  Sex: Female
  Weight: 86.1834 kg

DRUGS (11)
  1. FOSAMAX [Suspect]
     Indication: OSTEOPENIA
     Dosage: 70MG/WKY/PO
     Route: 048
     Dates: start: 20031124, end: 20040503
  2. ARICEPT [Concomitant]
  3. ESTRACE [Concomitant]
  4. LASIX [Concomitant]
  5. LOZOL [Concomitant]
  6. SURFAK [Concomitant]
  7. CALCIUM [Concomitant]
  8. NADOLOL [Concomitant]
  9. NITROFURANTOIN [Concomitant]
  10. VITAMIN E [Concomitant]
  11. MULTIVITAMIN [Concomitant]

REACTIONS (1)
  - OESOPHAGEAL ULCER [None]
